FAERS Safety Report 5067726-0 (Version None)
Quarter: 2006Q3

REPORT INFORMATION
  Report Type: 
  Country: None (occurrence: None)
  Receive Date: 20060712
  Receipt Date: 20060508
  Transmission Date: 20061208
  Serious: Yes (Other)
  Sender: FDA-Public Use
  Company Number: A03200602889

PATIENT
  Age: 78 Year
  Sex: Male

DRUGS (6)
  1. UROXATRAL [Suspect]
     Dosage: 10 MG OD - ORAL
     Route: 048
     Dates: start: 20050101
  2. MEMANTINE HCL [Suspect]
     Indication: DEMENTIA ALZHEIMER'S TYPE
     Dosage: 10 MG BID - ORAL
     Route: 048
     Dates: start: 20051101
  3. DIGITEK - DIGOXIN - TABLET - 0.25 MG [Suspect]
     Indication: ATRIAL FIBRILLATION
     Dosage: 0.25 MG QD - ORAL
     Route: 048
     Dates: start: 20060101, end: 20060401
  4. DIGITEK - DIGOXIN - TABLET - 0.125 MG [Suspect]
     Indication: ATRIAL FIBRILLATION
     Dosage: 0.125 MG QD - ORAL
     Route: 048
     Dates: start: 20060401
  5. PIOGLITAZONE HCL [Concomitant]
  6. GLIMEPIRIDE [Concomitant]

REACTIONS (1)
  - HYPOTENSION [None]
